FAERS Safety Report 23210212 (Version 1)
Quarter: 2023Q4

REPORT INFORMATION
  Report Type: Spontaneous
  Country: US (occurrence: US)
  Receive Date: 20231121
  Receipt Date: 20231121
  Transmission Date: 20240110
  Serious: No
  Sender: FDA-Public Use
  Company Number: US-ASTELLAS-2023US032617

PATIENT
  Sex: Female

DRUGS (1)
  1. VEOZAH [Suspect]
     Active Substance: FEZOLINETANT
     Indication: Hot flush
     Route: 048
     Dates: start: 202306

REACTIONS (1)
  - Drug ineffective [Not Recovered/Not Resolved]
